FAERS Safety Report 23594594 (Version 3)
Quarter: 2024Q2

REPORT INFORMATION
  Report Type: Spontaneous
  Country: US (occurrence: US)
  Receive Date: 20240305
  Receipt Date: 20240531
  Transmission Date: 20240716
  Serious: No
  Sender: FDA-Public Use
  Company Number: US-TAKEDA-2024TUS018162

PATIENT
  Age: 16 Year
  Sex: Female

DRUGS (6)
  1. ADDERALL XR [Suspect]
     Active Substance: AMPHETAMINE ASPARTATE\AMPHETAMINE SULFATE\DEXTROAMPHETAMINE SACCHARATE\DEXTROAMPHETAMINE SULFATE
     Indication: Attention deficit hyperactivity disorder
     Dosage: 20 MILLIGRAM, QD
     Route: 048
     Dates: start: 20221031
  2. DEXTROAMPHET SACCHARAT, AMPHET ASPARTATE, DEXTROAMPHET SULFATE AND AMP [Suspect]
     Active Substance: AMPHETAMINE ASPARTATE\AMPHETAMINE ASPARTATE MONOHYDRATE\AMPHETAMINE SULFATE\DEXTROAMPHETAMINE SACCHA
     Indication: Attention deficit hyperactivity disorder
     Dosage: UNK, QD
     Route: 048
     Dates: start: 20240115, end: 20240213
  3. DEXTROAMPHET SACCHARAT, AMPHET ASPARTATE, DEXTROAMPHET SULFATE AND AMP [Suspect]
     Active Substance: AMPHETAMINE ASPARTATE\AMPHETAMINE ASPARTATE MONOHYDRATE\AMPHETAMINE SULFATE\DEXTROAMPHETAMINE SACCHA
     Indication: Attention deficit hyperactivity disorder
     Dosage: UNK UNK, QD
     Route: 048
     Dates: start: 20240214, end: 20240217
  4. CLARITIN [Concomitant]
     Active Substance: LORATADINE
     Indication: Rhinitis allergic
     Dosage: 10 MILLIGRAM
     Route: 048
  5. MICROGESTIN [Concomitant]
     Active Substance: ETHINYL ESTRADIOL\NORETHINDRONE ACETATE
     Indication: Dysmenorrhoea
     Dosage: UNK, QD
     Route: 048
     Dates: start: 202310
  6. ALBUTEROL [Concomitant]
     Active Substance: ALBUTEROL
     Indication: Dyspnoea
     Dosage: UNK
     Route: 065

REACTIONS (9)
  - Tachyphrenia [Recovered/Resolved]
  - Migraine [Recovered/Resolved]
  - Inability to afford medication [Unknown]
  - Insurance issue [Unknown]
  - Drug ineffective [Recovered/Resolved]
  - Feeling jittery [Recovered/Resolved]
  - Anxiety [Recovering/Resolving]
  - Product availability issue [Unknown]
  - Product supply issue [Unknown]
